FAERS Safety Report 4583167-4 (Version None)
Quarter: 2005Q1

REPORT INFORMATION
  Report Type: 
  Country: None (occurrence: None)
  Receive Date: 20050215
  Receipt Date: 20050207
  Transmission Date: 20050727
  Serious: Yes (Life-Threatening, Hospitalization, Other)
  Sender: FDA-Public Use
  Company Number: DE-ABBOTT-05P-062-0290059-00

PATIENT
  Age: 60 Year
  Sex: Female

DRUGS (3)
  1. HUMIRA [Suspect]
     Indication: DRUG USE FOR UNKNOWN INDICATION
     Route: 058
     Dates: start: 20040201, end: 20040401
  2. INFLIXIMAB [Suspect]
     Indication: DRUG USE FOR UNKNOWN INDICATION
     Dates: start: 20040101, end: 20040201
  3. ETANERCEPT [Suspect]
     Indication: DRUG USE FOR UNKNOWN INDICATION
     Dosage: 25MG/75MG
     Dates: start: 20040501, end: 20040501

REACTIONS (5)
  - BRAIN ABSCESS [None]
  - CEREBRAL INFARCTION [None]
  - INFUSION RELATED REACTION [None]
  - LISTERIOSIS [None]
  - RHEUMATOID ARTHRITIS [None]
